FAERS Safety Report 7877822-8 (Version None)
Quarter: 2011Q4

REPORT INFORMATION
  Report Type: 
  Country: None (occurrence: None)
  Receive Date: 20111031
  Receipt Date: 20111031
  Transmission Date: 20120403
  Serious: Yes (Other)
  Sender: FDA-Public Use
  Company Number: None

PATIENT
  Age: 30 Year
  Sex: Female
  Weight: 56.699 kg

DRUGS (1)
  1. SPORANOX [Suspect]
     Indication: VAGINAL DISCHARGE
     Dosage: 1 TABLET
     Route: 048
     Dates: start: 20111027, end: 20111029

REACTIONS (2)
  - HAEMORRHAGE [None]
  - RASH [None]
